FAERS Safety Report 18529842 (Version 2)
Quarter: 2020Q4

REPORT INFORMATION
  Report Type: Spontaneous
  Country: US (occurrence: US)
  Receive Date: 20201120
  Receipt Date: 20201214
  Transmission Date: 20210114
  Serious: Yes (Hospitalization)
  Sender: FDA-Public Use
  Company Number: US-NOVOPROD-748542

PATIENT
  Age: 58 Year
  Sex: Female

DRUGS (6)
  1. NOVOLOG [Suspect]
     Active Substance: INSULIN ASPART
     Dosage: 3 IU WITH MEALS (DOSE DECREASED)
     Route: 058
  2. NOVOLOG [Suspect]
     Active Substance: INSULIN ASPART
     Indication: TYPE 2 DIABETES MELLITUS
     Dosage: 6 IU, QD
     Route: 058
     Dates: start: 2019
  3. LEVEMIR [Suspect]
     Active Substance: INSULIN DETEMIR
     Indication: TYPE 2 DIABETES MELLITUS
     Dosage: 70 IU, QD
     Route: 058
     Dates: start: 2019
  4. METFORMIN [Concomitant]
     Active Substance: METFORMIN HYDROCHLORIDE
     Indication: PRODUCT USED FOR UNKNOWN INDICATION
     Dosage: 1000 MG, BID
     Route: 065
  5. LEVEMIR [Suspect]
     Active Substance: INSULIN DETEMIR
     Dosage: 15 IU, QD
     Route: 058
  6. LEVEMIR [Suspect]
     Active Substance: INSULIN DETEMIR
     Dosage: 15 IU, QD
     Route: 058

REACTIONS (4)
  - Extra dose administered [Unknown]
  - Dose calculation error [Unknown]
  - Blood glucose decreased [Recovered/Resolved]
  - Blood glucose increased [Unknown]

NARRATIVE: CASE EVENT DATE: 2020
